FAERS Safety Report 4884568-7 (Version None)
Quarter: 2005Q4

REPORT INFORMATION
  Report Type: 
  Country: None (occurrence: None)
  Receive Date: 20051201
  Receipt Date: 20050825
  Transmission Date: 20060501
  Serious: No
  Sender: FDA-Public Use
  Company Number: 2005PV001576

PATIENT
  Age: 62 Year
  Sex: Female
  Weight: 105.6881 kg

DRUGS (6)
  1. BYETTA [Suspect]
     Indication: DIABETES MELLITUS NON-INSULIN-DEPENDENT
     Dosage: 5 MCG; BID; SC
     Route: 058
     Dates: start: 20050824
  2. LIPITOR [Concomitant]
  3. ACTOS [Concomitant]
  4. METFORMIN HCL [Concomitant]
  5. ACCUPRIL [Concomitant]
  6. ASPIRIN [Concomitant]

REACTIONS (3)
  - NAUSEA [None]
  - VOMITING [None]
  - WEIGHT DECREASED [None]
